FAERS Safety Report 16054101 (Version 4)
Quarter: 2019Q2

REPORT INFORMATION
  Report Type: Spontaneous
  Country: FR (occurrence: FR)
  Receive Date: 20190308
  Receipt Date: 20190408
  Transmission Date: 20190711
  Serious: Yes (Other)
  Sender: FDA-Public Use
  Company Number: PHHY2019FR003905

PATIENT
  Age: 81 Year
  Sex: Male

DRUGS (2)
  1. AZOPT [Suspect]
     Active Substance: BRINZOLAMIDE
     Indication: GLAUCOMA
     Dosage: 1 GTT, QD
     Route: 047
  2. MONOPROST [Suspect]
     Active Substance: LATANOPROST
     Indication: INTRAOCULAR PRESSURE TEST ABNORMAL
     Dosage: 1 GTT, QD
     Route: 065

REACTIONS (24)
  - Back pain [Unknown]
  - Cough [Unknown]
  - Throat irritation [Unknown]
  - Eye pain [Unknown]
  - Fatigue [Unknown]
  - Angina pectoris [Unknown]
  - Ageusia [Unknown]
  - Maculopathy [Unknown]
  - Dyspnoea [Unknown]
  - Asthenia [Unknown]
  - Arthralgia [Unknown]
  - Hypoaesthesia [Unknown]
  - Taste disorder [Unknown]
  - Eye pruritus [Unknown]
  - Libido decreased [Unknown]
  - Palpitations [Unknown]
  - Memory impairment [Unknown]
  - Gastrointestinal disorder [Unknown]
  - Dizziness [Unknown]
  - Oropharyngeal pain [Unknown]
  - Pain in extremity [Unknown]
  - Anxiety [Unknown]
  - Blood pressure increased [Unknown]
  - Depression [Unknown]
